FAERS Safety Report 20651389 (Version 1)
Quarter: 2022Q1

REPORT INFORMATION
  Report Type: Spontaneous
  Country: PT (occurrence: PT)
  Receive Date: 20220330
  Receipt Date: 20220330
  Transmission Date: 20220423
  Serious: Yes (Other)
  Sender: FDA-Public Use
  Company Number: PT-ALVOGEN-2022-ALVOGEN-119222

PATIENT
  Age: 37 Year
  Sex: Female

DRUGS (5)
  1. DOXORUBICIN [Suspect]
     Active Substance: DOXORUBICIN
     Indication: Metaplastic breast carcinoma
     Dosage: 60 MG/M2
  2. CYCLOPHOSPHAMIDE [Suspect]
     Active Substance: CYCLOPHOSPHAMIDE
     Indication: Metaplastic breast carcinoma
     Dosage: 600 MG/M2
  3. PACLITAXEL [Concomitant]
     Active Substance: PACLITAXEL
     Indication: Metaplastic breast carcinoma
  4. CARBOPLATIN [Concomitant]
     Active Substance: CARBOPLATIN
     Indication: Metaplastic breast carcinoma
     Dosage: AUC (AREA UNDER CURVE) 6 EVERY THREE WEEKS (FOUR CYCLES)
  5. FILGRASTIM [Concomitant]
     Active Substance: FILGRASTIM
     Indication: Prophylaxis
     Dosage: EIGHT DAYS

REACTIONS (5)
  - Pancytopenia [Recovered/Resolved]
  - Febrile neutropenia [Recovered/Resolved]
  - Abdominal pain [Recovered/Resolved]
  - Hypotension [Recovered/Resolved]
  - Fatigue [Recovered/Resolved]
